FAERS Safety Report 7905102-0 (Version None)
Quarter: 2011Q4

REPORT INFORMATION
  Report Type: 
  Country: None (occurrence: None)
  Receive Date: 20111109
  Receipt Date: 20111108
  Transmission Date: 20120403
  Serious: Yes (Death, Hospitalization, Other)
  Sender: FDA-Public Use
  Company Number: PHHY2011FR22798

PATIENT
  Sex: Female

DRUGS (8)
  1. VALSARTAN  AND HYDROCHLOROTHIAZIDE [Concomitant]
     Dosage: UNK
  2. AMLODIPINE BESYLATE [Concomitant]
     Dosage: UNK
  3. LESCOL [Suspect]
     Dosage: UNK
     Route: 048
     Dates: start: 20050101, end: 20110302
  4. BISOPROLOL FUMARATE [Concomitant]
  5. ESOMEPRAZOLE [Concomitant]
     Dosage: UNK
  6. AMIODARONE HCL [Interacting]
     Dosage: UNK
     Dates: start: 20110209, end: 20110302
  7. ASPEGIC 325 [Concomitant]
     Dosage: UNK
  8. COLCHICINE [Interacting]
     Dosage: UNK
     Route: 048
     Dates: start: 20110209, end: 20110302

REACTIONS (15)
  - RHABDOMYOLYSIS [None]
  - PERICARDIAL EFFUSION [None]
  - MYOCARDIAL INFARCTION [None]
  - PAIN IN EXTREMITY [None]
  - RENAL FAILURE ACUTE [None]
  - RENAL HYPERTROPHY [None]
  - ABDOMINAL PAIN [None]
  - MUSCULAR WEAKNESS [None]
  - VOMITING [None]
  - MYALGIA [None]
  - DIARRHOEA [None]
  - HAEMOGLOBIN DECREASED [None]
  - FEELING HOT [None]
  - CYTOLYTIC HEPATITIS [None]
  - DRUG INTERACTION [None]
